FAERS Safety Report 19715892 (Version 2)
Quarter: 2021Q4

REPORT INFORMATION
  Report Type: Spontaneous
  Country: US (occurrence: US)
  Receive Date: 20210819
  Receipt Date: 20211021
  Transmission Date: 20220303
  Serious: Yes (Hospitalization)
  Sender: FDA-Public Use
  Company Number: US-FARMAPROD-202108-1364

PATIENT
  Age: 62 Year
  Sex: Female

DRUGS (11)
  1. OXERVATE [Suspect]
     Active Substance: CENEGERMIN-BKBJ
     Indication: Neurotrophic keratopathy
     Route: 047
     Dates: start: 20210615, end: 20210803
  2. SIMVASTATIN [Concomitant]
     Active Substance: SIMVASTATIN
  3. HYDROCODONE BITARTRATE AND ACETAMINOPHEN [Concomitant]
     Active Substance: ACETAMINOPHEN\HYDROCODONE BITARTRATE
  4. PANTOPRAZOLE SODIUM [Concomitant]
     Active Substance: PANTOPRAZOLE SODIUM
  5. METFORMIN [Concomitant]
     Active Substance: METFORMIN HYDROCHLORIDE
  6. FUROSEMIDE [Concomitant]
     Active Substance: FUROSEMIDE
  7. FERROUS SULFATE [Concomitant]
     Active Substance: FERROUS SULFATE
  8. VITAMIN D2 [Concomitant]
     Active Substance: ERGOCALCIFEROL
  9. VOLTAREN [Concomitant]
     Active Substance: DICLOFENAC SODIUM
     Indication: Arthralgia
  10. CELEBREX [Concomitant]
     Active Substance: CELECOXIB
  11. ASPIRIN [Concomitant]
     Active Substance: ASPIRIN

REACTIONS (3)
  - Ankle fracture [Recovered/Resolved]
  - Road traffic accident [Recovered/Resolved]
  - Therapy interrupted [Unknown]

NARRATIVE: CASE EVENT DATE: 20210803
